FAERS Safety Report 17443600 (Version 1)
Quarter: 2020Q1

REPORT INFORMATION
  Report Type: Spontaneous
  Country: DE (occurrence: DE)
  Receive Date: 20200221
  Receipt Date: 20200221
  Transmission Date: 20200409
  Serious: Yes (Death, Other)
  Sender: FDA-Public Use
  Company Number: DE-AMGEN-DEUSP2020028210

PATIENT

DRUGS (1)
  1. IMLYGIC [Suspect]
     Active Substance: TALIMOGENE LAHERPAREPVEC
     Indication: MALIGNANT MELANOMA STAGE IV
     Dosage: UNK
     Route: 026

REACTIONS (3)
  - Melanoma recurrent [Fatal]
  - Therapy non-responder [Unknown]
  - Blood lactate dehydrogenase increased [Unknown]
